FAERS Safety Report 19019872 (Version 1)
Quarter: 2021Q1

REPORT INFORMATION
  Report Type: Spontaneous
  Country: IT (occurrence: IT)
  Receive Date: 20210317
  Receipt Date: 20210317
  Transmission Date: 20210420
  Serious: Yes (Death, Life-Threatening, Hospitalization, Disabling, Other)
  Sender: FDA-Public Use
  Company Number: IT-MYLANLABS-2021M1015515

PATIENT
  Age: 55 Year
  Sex: Male

DRUGS (14)
  1. METHYLPREDNISOLONE. [Suspect]
     Active Substance: METHYLPREDNISOLONE
     Indication: IMMUNOSUPPRESSANT DRUG THERAPY
  2. IMMUNOGLOBULIN                     /07494701/ [Suspect]
     Active Substance: IMMUNE GLOBULIN NOS
     Indication: IMMUNOSUPPRESSANT DRUG THERAPY
     Dosage: 400 MILLIGRAM/KILOGRAM A CYCLE OF IVIG 400 MG/KG
     Route: 042
  3. MYCOPHENOLATE MOFETIL. [Suspect]
     Active Substance: MYCOPHENOLATE MOFETIL
     Indication: IMMUNOSUPPRESSANT DRUG THERAPY
     Dosage: 3 GRAM, QD WHICH WAS INCREASED PROGRESSIVELY UP TO 3 G DAILY OVER 3 WEEKS.
     Route: 065
  4. PREDNISONE. [Suspect]
     Active Substance: PREDNISONE
     Indication: DERMATOMYOSITIS
     Dosage: 10 MILLIGRAM
     Route: 048
  5. TACROLIMUS. [Suspect]
     Active Substance: TACROLIMUS
     Indication: IMMUNOSUPPRESSANT DRUG THERAPY
  6. BEGELOMAB. [Concomitant]
     Active Substance: BEGELOMAB
     Indication: DERMATOMYOSITIS
     Dosage: 4 MILLIGRAM/SQ. METER, QD DOSAGE OF 4 MG/M 2 DAILY FOR 5 CONSECUTIVE DAYS; 3 CYCLES OF 5?DAYS
  7. BEGELOMAB. [Concomitant]
     Active Substance: BEGELOMAB
     Dosage: 4 MILLIGRAM/SQ. METER, QOD MAINTENANCE THERAPY WITH BEGELOMAB AT THE DOSAGE?
  8. PREDNISONE. [Suspect]
     Active Substance: PREDNISONE
     Indication: IMMUNOSUPPRESSANT DRUG THERAPY
  9. METHYLPREDNISOLONE. [Suspect]
     Active Substance: METHYLPREDNISOLONE
     Indication: DERMATOMYOSITIS
     Dosage: 0.7 MILLIGRAM/KILOGRAM, QD METHYLPREDNISOLONE 0.7 MG/KG DAILY TO BE SLOWLY TAPERED
     Route: 048
  10. RITUXIMAB. [Suspect]
     Active Substance: RITUXIMAB
     Indication: IMMUNOSUPPRESSANT DRUG THERAPY
  11. TACROLIMUS. [Suspect]
     Active Substance: TACROLIMUS
     Indication: DERMATOMYOSITIS
     Dosage: 1 GRAM
     Route: 065
  12. IMMUNOGLOBULIN                     /07494701/ [Suspect]
     Active Substance: IMMUNE GLOBULIN NOS
     Indication: DERMATOMYOSITIS
     Dosage: 2000 MILLIGRAM/KILOGRAM 2 G/KG OVER 5 CONSECUTIVE DAYS
     Route: 042
  13. MYCOPHENOLATE MOFETIL. [Suspect]
     Active Substance: MYCOPHENOLATE MOFETIL
     Indication: DERMATOMYOSITIS
     Dosage: 1 GRAM, QD
     Route: 065
  14. RITUXIMAB. [Suspect]
     Active Substance: RITUXIMAB
     Indication: DERMATOMYOSITIS
     Dosage: 1 GRAM, CYCLE ALTERNATE CYCLES
     Route: 065

REACTIONS (13)
  - Respiratory failure [Fatal]
  - Fungal peritonitis [Unknown]
  - Jejunal perforation [Recovered/Resolved]
  - Treatment failure [Unknown]
  - Acute hepatitis C [Fatal]
  - Candida infection [Unknown]
  - Vasculitis gastrointestinal [Recovered/Resolved]
  - Enterococcal sepsis [Recovered/Resolved]
  - Dermatomyositis [Recovering/Resolving]
  - Ileal perforation [Recovered/Resolved]
  - Pneumonia aspiration [Fatal]
  - Condition aggravated [Recovering/Resolving]
  - General physical health deterioration [Unknown]
